FAERS Safety Report 5020682-3 (Version None)
Quarter: 2006Q2

REPORT INFORMATION
  Report Type: 
  Country: None (occurrence: None)
  Receive Date: 20060602
  Receipt Date: 20060519
  Transmission Date: 20061013
  Serious: Yes (Death, Other)
  Sender: FDA-Public Use
  Company Number: US200605001906

PATIENT
  Age: 38 Year
  Sex: Female

DRUGS (1)
  1. HUMAN INSULIN (RDNA ORIGIN) (HUMAN INSULIN (RDNA ORIGIN) [Suspect]
     Indication: DIABETES MELLITUS

REACTIONS (3)
  - CARDIAC FAILURE [None]
  - DIALYSIS [None]
  - RENAL TRANSPLANT [None]
